FAERS Safety Report 22619846 (Version 1)
Quarter: 2023Q2

REPORT INFORMATION
  Report Type: Spontaneous
  Country: CN (occurrence: CN)
  Receive Date: 20230620
  Receipt Date: 20230620
  Transmission Date: 20230721
  Serious: Yes (Other)
  Sender: FDA-Public Use
  Company Number: CN-MYLANLABS-2023M1062423

PATIENT
  Age: 71 Year
  Sex: Male
  Weight: 68 kg

DRUGS (7)
  1. LIPITOR [Suspect]
     Active Substance: ATORVASTATIN CALCIUM
     Indication: Arteriosclerosis
     Dosage: 20 MILLIGRAM, QD
     Route: 048
     Dates: start: 20230601, end: 20230603
  2. FLUCONAZOLE [Suspect]
     Active Substance: FLUCONAZOLE
     Indication: Candida infection
     Dosage: 0.4 GRAM, QD
     Route: 042
     Dates: start: 20230602, end: 20230603
  3. MEROPENEM [Suspect]
     Active Substance: MEROPENEM
     Indication: Infection
     Dosage: 1 GRAM, TID
     Route: 042
     Dates: start: 20230531, end: 20230605
  4. LEVOFLOXACIN [Concomitant]
     Active Substance: LEVOFLOXACIN
     Indication: Infection
     Dosage: 0.5 GRAM, QD
     Route: 042
     Dates: start: 20230531, end: 20230601
  5. SODIUM CHLORIDE [Concomitant]
     Active Substance: SODIUM CHLORIDE
     Indication: Product used for unknown indication
     Dosage: 100 MILLILITER, QD
     Route: 042
     Dates: start: 20230531, end: 20230601
  6. SODIUM CHLORIDE [Concomitant]
     Active Substance: SODIUM CHLORIDE
     Dosage: 50 MILLILITER, TID
     Route: 042
     Dates: start: 20230531, end: 20230605
  7. ILAPRAZOLE [Concomitant]
     Active Substance: ILAPRAZOLE
     Indication: Gastric pH decreased
     Dosage: 10 MILLIGRAM, QD
     Route: 042
     Dates: start: 20230531, end: 20230601

REACTIONS (2)
  - Myocardial necrosis marker increased [Recovering/Resolving]
  - Thrombocytopenia [Recovering/Resolving]

NARRATIVE: CASE EVENT DATE: 20230603
